FAERS Safety Report 21207107 (Version 1)
Quarter: 2022Q3

REPORT INFORMATION
  Report Type: Spontaneous
  Country: US (occurrence: None)
  Receive Date: 20220811
  Receipt Date: 20220811
  Transmission Date: 20221026
  Serious: Yes (Other)
  Sender: FDA-Public Use
  Company Number: None

PATIENT
  Age: 59 Year
  Sex: Female
  Weight: 66.6 kg

DRUGS (1)
  1. LYRICA [Suspect]
     Active Substance: PREGABALIN
     Indication: Pain
     Dosage: FREQUENCY : TWICE A DAY;?
     Route: 048
     Dates: start: 2019, end: 2019

REACTIONS (5)
  - Product substitution issue [None]
  - Proctalgia [None]
  - Drug ineffective [None]
  - Headache [None]
  - Product dispensing error [None]

NARRATIVE: CASE EVENT DATE: 20190201
